FAERS Safety Report 8102946 (Version 9)
Quarter: 2013Q1

REPORT INFORMATION
  Report Type: Report from Study
  Country: FR (occurrence: FR)
  Receive Date: 20110824
  Receipt Date: 20130205
  Transmission Date: 20140127
  Serious: Yes (Death, Hospitalization, Other)
  Sender: FDA-Public Use
  Company Number: FR-BIOGENIDEC-2011BI031122

PATIENT
  Age: 39 Year
  Sex: Female
  Weight: 54 kg

DRUGS (19)
  1. TYSABRI [Suspect]
     Indication: MULTIPLE SCLEROSIS
     Route: 042
     Dates: start: 20080415, end: 20110706
  2. ALPRAZOLAM [Concomitant]
     Indication: ANXIOLYTIC THERAPY
     Route: 048
     Dates: end: 20110825
  3. RIVOTRIL [Concomitant]
     Indication: ANXIOLYTIC THERAPY
     Route: 048
     Dates: end: 20110825
  4. RIVOTRIL [Concomitant]
     Indication: ANXIOLYTIC THERAPY
     Dates: start: 20111213
  5. TAMSULOSIN [Concomitant]
     Indication: HYPERTONIC BLADDER
  6. TAMSULOSIN [Concomitant]
     Indication: HYPERTONIC BLADDER
     Route: 048
     Dates: start: 20120104
  7. PARACETAMOL [Concomitant]
     Indication: PAIN
     Route: 048
  8. URBANYL [Concomitant]
     Indication: CONVULSION PROPHYLAXIS
  9. URBANYL [Concomitant]
     Indication: CONVULSION PROPHYLAXIS
     Dates: start: 20111217
  10. URBANYL [Concomitant]
     Indication: CONVULSION PROPHYLAXIS
     Dates: start: 201112
  11. ERYTHROMYCIN [Concomitant]
     Indication: ACNE
     Dates: start: 201111
  12. DIFFU K [Concomitant]
     Dates: start: 201110, end: 201111
  13. ZOLPIDEM [Concomitant]
     Indication: SEDATIVE THERAPY
     Dates: start: 201110, end: 201111
  14. ANTIDEPRESSANT [Concomitant]
  15. INEXIUM [Concomitant]
     Indication: GASTRIC ULCER
     Dates: start: 201110
  16. MACROGOL [Concomitant]
     Indication: LAXATIVE SUPPORTIVE CARE
     Dates: start: 201110
  17. CARBAMAZEPINE [Concomitant]
     Indication: CONVULSION PROPHYLAXIS
     Dates: start: 20111222
  18. LORAZEPAM [Concomitant]
     Indication: ANXIOLYTIC THERAPY
     Dates: start: 20111222
  19. GLATIRAMER ACETATE [Concomitant]
     Indication: MULTIPLE SCLEROSIS
     Dates: start: 20120427

REACTIONS (4)
  - Completed suicide [Fatal]
  - Progressive multifocal leukoencephalopathy [Not Recovered/Not Resolved]
  - Immune reconstitution inflammatory syndrome [Recovered/Resolved]
  - Convulsion [Recovered/Resolved]
